FAERS Safety Report 13637499 (Version 2)
Quarter: 2017Q2

REPORT INFORMATION
  Report Type: Spontaneous
  Country: US (occurrence: US)
  Receive Date: 20170609
  Receipt Date: 20170619
  Transmission Date: 20170830
  Serious: Yes (Death, Hospitalization, Other)
  Sender: FDA-Public Use
  Company Number: US-ASTELLAS-2017US022916

PATIENT
  Age: 83 Year
  Sex: Male

DRUGS (1)
  1. XTANDI [Suspect]
     Active Substance: ENZALUTAMIDE
     Indication: PRODUCT USED FOR UNKNOWN INDICATION
     Route: 048
     Dates: start: 201605, end: 20170523

REACTIONS (5)
  - Rectal haemorrhage [Recovered/Resolved]
  - Central nervous system mass [Fatal]
  - Spinal laminectomy [Unknown]
  - General physical health deterioration [Fatal]
  - Spinal cord compression [Fatal]

NARRATIVE: CASE EVENT DATE: 20170417
